FAERS Safety Report 10027629 (Version 4)
Quarter: 2014Q2

REPORT INFORMATION
  Report Type: Report from Study
  Country: JP (occurrence: JP)
  Receive Date: 20140321
  Receipt Date: 20140612
  Transmission Date: 20141212
  Serious: Yes (Hospitalization)
  Sender: FDA-Public Use
  Company Number: JP-ASTRAZENECA-2014SE18903

PATIENT
  Age: 28908 Day
  Sex: Female

DRUGS (40)
  1. ARIMIDEX [Suspect]
     Indication: BREAST CANCER
     Route: 048
     Dates: start: 20130926, end: 20140312
  2. ARIMIDEX [Suspect]
     Indication: METASTASES TO SKIN
     Route: 048
     Dates: start: 20130926, end: 20140312
  3. ARIMIDEX [Suspect]
     Indication: METASTASES TO LYMPH NODES
     Route: 048
     Dates: start: 20130926, end: 20140312
  4. ARIMIDEX [Suspect]
     Indication: BREAST CANCER
     Route: 048
     Dates: start: 20140409
  5. ARIMIDEX [Suspect]
     Indication: METASTASES TO SKIN
     Route: 048
     Dates: start: 20140409
  6. ARIMIDEX [Suspect]
     Indication: METASTASES TO LYMPH NODES
     Route: 048
     Dates: start: 20140409
  7. PLACEBO [Suspect]
     Indication: BREAST CANCER
     Dosage: EVERY FOUR WEEKS
     Route: 030
     Dates: start: 20130926, end: 20130926
  8. PLACEBO [Suspect]
     Indication: METASTASES TO SKIN
     Dosage: EVERY FOUR WEEKS
     Route: 030
     Dates: start: 20130926, end: 20130926
  9. PLACEBO [Suspect]
     Indication: METASTASES TO LYMPH NODES
     Dosage: EVERY FOUR WEEKS
     Route: 030
     Dates: start: 20130926, end: 20130926
  10. PLACEBO [Suspect]
     Indication: BREAST CANCER
     Dosage: EVERY FOUR WEEKS
     Route: 030
     Dates: start: 20131009, end: 20131009
  11. PLACEBO [Suspect]
     Indication: METASTASES TO SKIN
     Dosage: EVERY FOUR WEEKS
     Route: 030
     Dates: start: 20131009, end: 20131009
  12. PLACEBO [Suspect]
     Indication: METASTASES TO LYMPH NODES
     Dosage: EVERY FOUR WEEKS
     Route: 030
     Dates: start: 20131009, end: 20131009
  13. PLACEBO [Suspect]
     Indication: BREAST CANCER
     Dosage: EVERY FOUR WEEKS
     Route: 030
     Dates: start: 20131023, end: 20131023
  14. PLACEBO [Suspect]
     Indication: METASTASES TO SKIN
     Dosage: EVERY FOUR WEEKS
     Route: 030
     Dates: start: 20131023, end: 20131023
  15. PLACEBO [Suspect]
     Indication: METASTASES TO LYMPH NODES
     Dosage: EVERY FOUR WEEKS
     Route: 030
     Dates: start: 20131023, end: 20131023
  16. PLACEBO [Suspect]
     Indication: BREAST CANCER
     Dosage: EVERY FOUR WEEKS
     Route: 030
     Dates: start: 20131120, end: 20131120
  17. PLACEBO [Suspect]
     Indication: METASTASES TO SKIN
     Dosage: EVERY FOUR WEEKS
     Route: 030
     Dates: start: 20131120, end: 20131120
  18. PLACEBO [Suspect]
     Indication: METASTASES TO LYMPH NODES
     Dosage: EVERY FOUR WEEKS
     Route: 030
     Dates: start: 20131120, end: 20131120
  19. PLACEBO [Suspect]
     Indication: BREAST CANCER
     Dosage: EVERY FOUR WEEKS
     Route: 030
     Dates: start: 20131218, end: 20131218
  20. PLACEBO [Suspect]
     Indication: METASTASES TO SKIN
     Dosage: EVERY FOUR WEEKS
     Route: 030
     Dates: start: 20131218, end: 20131218
  21. PLACEBO [Suspect]
     Indication: METASTASES TO LYMPH NODES
     Dosage: EVERY FOUR WEEKS
     Route: 030
     Dates: start: 20131218, end: 20131218
  22. PLACEBO [Suspect]
     Indication: BREAST CANCER
     Dosage: EVERY FOUR WEEKS
     Route: 030
     Dates: start: 20140115, end: 20140115
  23. PLACEBO [Suspect]
     Indication: METASTASES TO SKIN
     Dosage: EVERY FOUR WEEKS
     Route: 030
     Dates: start: 20140115, end: 20140115
  24. PLACEBO [Suspect]
     Indication: METASTASES TO LYMPH NODES
     Dosage: EVERY FOUR WEEKS
     Route: 030
     Dates: start: 20140115, end: 20140115
  25. PLACEBO [Suspect]
     Indication: BREAST CANCER
     Dosage: EVERY FOUR WEEKS
     Route: 030
     Dates: start: 20140212, end: 20140212
  26. PLACEBO [Suspect]
     Indication: METASTASES TO SKIN
     Dosage: EVERY FOUR WEEKS
     Route: 030
     Dates: start: 20140212, end: 20140212
  27. PLACEBO [Suspect]
     Indication: METASTASES TO LYMPH NODES
     Dosage: EVERY FOUR WEEKS
     Route: 030
     Dates: start: 20140212, end: 20140212
  28. PLACEBO [Suspect]
     Indication: BREAST CANCER
     Dosage: EVERY FOUR WEEKS
     Route: 030
     Dates: start: 20140409, end: 20140409
  29. PLACEBO [Suspect]
     Indication: METASTASES TO SKIN
     Dosage: EVERY FOUR WEEKS
     Route: 030
     Dates: start: 20140409, end: 20140409
  30. PLACEBO [Suspect]
     Indication: METASTASES TO LYMPH NODES
     Dosage: EVERY FOUR WEEKS
     Route: 030
     Dates: start: 20140409, end: 20140409
  31. PLACEBO [Suspect]
     Indication: BREAST CANCER
     Dosage: EVERY FOUR WEEKS
     Route: 030
     Dates: start: 20140507, end: 20140507
  32. PLACEBO [Suspect]
     Indication: METASTASES TO SKIN
     Dosage: EVERY FOUR WEEKS
     Route: 030
     Dates: start: 20140507, end: 20140507
  33. PLACEBO [Suspect]
     Indication: METASTASES TO LYMPH NODES
     Dosage: EVERY FOUR WEEKS
     Route: 030
     Dates: start: 20140507, end: 20140507
  34. VOGLIBOSE [Concomitant]
     Indication: DIABETES MELLITUS
     Route: 048
  35. ACTOS [Concomitant]
     Indication: DIABETES MELLITUS
     Route: 048
  36. CRESTOR [Concomitant]
     Indication: HYPERLIPIDAEMIA
     Route: 048
  37. ETIZOLAM [Concomitant]
     Indication: ANXIETY
     Route: 048
  38. FAMOTIDINE [Concomitant]
     Indication: GASTRITIS
     Route: 048
  39. AMLODIPINE [Concomitant]
     Indication: HYPERTENSION
     Route: 048
  40. KARY UNI [Concomitant]
     Indication: CATARACT
     Route: 047

REACTIONS (1)
  - Bile duct stone [Recovered/Resolved]
